FAERS Safety Report 24312752 (Version 1)
Quarter: 2024Q3

REPORT INFORMATION
  Report Type: Report from Study
  Country: CZ (occurrence: CZ)
  Receive Date: 20240912
  Receipt Date: 20240912
  Transmission Date: 20241017
  Serious: Yes (Death)
  Sender: TEVA
  Company Number: CZ-TEVA-VS-3241022

PATIENT
  Age: 58 Year
  Sex: Male

DRUGS (4)
  1. ACYCLOVIR [Suspect]
     Active Substance: ACYCLOVIR
     Indication: Antiviral prophylaxis
     Dosage: ADMINISTERED FROM DAY -2 OF TRANSPLANT (HIGH-DOSE)
     Route: 065
  2. CYTARABINE [Concomitant]
     Active Substance: CYTARABINE
     Indication: Bone marrow conditioning regimen
  3. FLUDARABINE [Concomitant]
     Active Substance: FLUDARABINE PHOSPHATE
     Indication: Bone marrow conditioning regimen
  4. AMSACRINE [Concomitant]
     Active Substance: AMSACRINE
     Indication: Bone marrow conditioning regimen

REACTIONS (1)
  - Drug ineffective [Fatal]
